FAERS Safety Report 8106700-4 (Version None)
Quarter: 2012Q1

REPORT INFORMATION
  Report Type: 
  Country: None (occurrence: None)
  Receive Date: 20120202
  Receipt Date: 20120124
  Transmission Date: 20120608
  Serious: Yes (Hospitalization, Other)
  Sender: FDA-Public Use
  Company Number: US-AMGEN-USASP2012005368

PATIENT
  Age: 92 Year
  Sex: Male
  Weight: 66.667 kg

DRUGS (5)
  1. PROCRIT [Suspect]
     Dosage: 80000 IU, 2 TIMES/WK
     Dates: start: 20110101, end: 20110101
  2. PROCRIT [Suspect]
     Indication: MYELODYSPLASTIC SYNDROME
     Dosage: 40000 IU, 2 TIMES/WK
     Dates: start: 20110101, end: 20110101
  3. DARBEPOETIN ALFA [Suspect]
     Indication: MYELODYSPLASTIC SYNDROME
     Dosage: 100000 IU, UNK
     Dates: start: 20120101
  4. ANTIHYPERTENSIVES [Concomitant]
     Indication: HYPERTENSION
  5. LASIX [Concomitant]
     Indication: FLUID RETENTION

REACTIONS (4)
  - HAEMOGLOBIN DECREASED [None]
  - DIZZINESS [None]
  - HIP FRACTURE [None]
  - FALL [None]
